FAERS Safety Report 20378023 (Version 1)
Quarter: 2022Q1

REPORT INFORMATION
  Report Type: Spontaneous
  Country: US (occurrence: US)
  Receive Date: 20220126
  Receipt Date: 20220126
  Transmission Date: 20220423
  Serious: No
  Sender: FDA-Public Use
  Company Number: US-ALLERGAN-2137989US

PATIENT
  Sex: Female

DRUGS (4)
  1. UBRELVY [Suspect]
     Active Substance: UBROGEPANT
     Indication: Migraine
     Dosage: 50 MG AS NEEDED
  2. UBRELVY [Suspect]
     Active Substance: UBROGEPANT
     Dosage: 100 MG AS NEEDED
  3. UBRELVY [Suspect]
     Active Substance: UBROGEPANT
     Dosage: 200 MG
  4. UBRELVY [Suspect]
     Active Substance: UBROGEPANT
     Dosage: 300 MG

REACTIONS (2)
  - Inappropriate schedule of product administration [Unknown]
  - Off label use [Unknown]
